FAERS Safety Report 20045062 (Version 1)
Quarter: 2021Q4

REPORT INFORMATION
  Report Type: Spontaneous
  Country: CA (occurrence: CA)
  Receive Date: 20211108
  Receipt Date: 20211108
  Transmission Date: 20220303
  Serious: Yes (Other)
  Sender: FDA-Public Use
  Company Number: CA-TEVA-2021-CA-1973244

PATIENT
  Age: 80 Year
  Sex: Male

DRUGS (1)
  1. OXALIPLATIN [Suspect]
     Active Substance: OXALIPLATIN
     Route: 042

REACTIONS (5)
  - Erythema [Unknown]
  - Flushing [Unknown]
  - Hypersensitivity [Unknown]
  - Hypertension [Unknown]
  - Skin warm [Unknown]
